FAERS Safety Report 7483508-4 (Version None)
Quarter: 2011Q2

REPORT INFORMATION
  Report Type: 
  Country: None (occurrence: None)
  Receive Date: 20110517
  Receipt Date: 20110503
  Transmission Date: 20111010
  Serious: Yes (Other)
  Sender: FDA-Public Use
  Company Number: DK-JNJFOC-20110404171

PATIENT
  Sex: Female
  Weight: 60 kg

DRUGS (4)
  1. ASACOL [Concomitant]
     Dates: end: 20110321
  2. REMICADE [Suspect]
     Indication: COLITIS ULCERATIVE
     Dosage: 300 MG
     Route: 042
     Dates: start: 20100504, end: 20110321
  3. REMICADE [Suspect]
     Indication: CROHN'S DISEASE
     Dosage: 300 MG
     Route: 042
     Dates: start: 20100504, end: 20110321
  4. BALSALAZIDE DISODIUM [Concomitant]
     Dates: start: 20081021, end: 20110321

REACTIONS (8)
  - PALLOR [None]
  - COLD SWEAT [None]
  - INFUSION RELATED REACTION [None]
  - DEFAECATION URGENCY [None]
  - HYPOTENSION [None]
  - MALAISE [None]
  - ANTIBODY TEST POSITIVE [None]
  - FEELING HOT [None]
